FAERS Safety Report 10441002 (Version 4)
Quarter: 2014Q4

REPORT INFORMATION
  Report Type: Report from Study
  Country: JP (occurrence: JP)
  Receive Date: 20140909
  Receipt Date: 20141202
  Transmission Date: 20150528
  Serious: Yes (Other)
  Sender: FDA-Public Use
  Company Number: JP-PFIZER INC-2014237655

PATIENT
  Age: 70 Year
  Sex: Female

DRUGS (4)
  1. FOLIAMIN [Concomitant]
     Active Substance: FOLIC ACID
     Dosage: 5 MG TABLET
     Route: 048
  2. ISCOTIN [Concomitant]
     Active Substance: ISONIAZID
     Indication: ANTIBIOTIC PROPHYLAXIS
     Dosage: UNK
     Route: 065
     Dates: start: 20140613
  3. XELJANZ [Suspect]
     Active Substance: TOFACITINIB CITRATE
     Indication: RHEUMATOID ARTHRITIS
     Dosage: 5 MG, 2X/DAY
     Route: 048
     Dates: start: 20140613, end: 20140811
  4. RHEUMATREX [Concomitant]
     Active Substance: METHOTREXATE SODIUM
     Indication: RHEUMATOID ARTHRITIS
     Dosage: 10 MG, WEEKLY
     Route: 048
     Dates: end: 20140811

REACTIONS (3)
  - Interstitial lung disease [Recovering/Resolving]
  - Urinary tract infection [Recovering/Resolving]
  - Systemic mycosis [Recovering/Resolving]

NARRATIVE: CASE EVENT DATE: 20140811
